FAERS Safety Report 6681983-6 (Version None)
Quarter: 2010Q2

REPORT INFORMATION
  Report Type: 
  Country: None (occurrence: None)
  Receive Date: 20100414
  Receipt Date: 20100414
  Transmission Date: 20101027
  Serious: Yes (Hospitalization, Other)
  Sender: FDA-Public Use
  Company Number: None

PATIENT
  Sex: Female
  Weight: 59.8748 kg

DRUGS (1)
  1. FOSAMAX [Suspect]
     Indication: OSTEOPENIA
     Dosage: 1 TABET 1 A WEEK 12-14 YEARS

REACTIONS (4)
  - ARTHRALGIA [None]
  - BONE DISORDER [None]
  - FEMUR FRACTURE [None]
  - WALKING AID USER [None]
